FAERS Safety Report 21074957 (Version 4)
Quarter: 2022Q4

REPORT INFORMATION
  Report Type: Spontaneous
  Country: US (occurrence: US)
  Receive Date: 20220713
  Receipt Date: 20221121
  Transmission Date: 20230113
  Serious: No
  Sender: FDA-Public Use
  Company Number: US-BRISTOL-MYERS SQUIBB COMPANY-2022-072874

PATIENT
  Age: 66 Year
  Sex: Male
  Weight: 64 kg

DRUGS (2)
  1. REVLIMID [Suspect]
     Active Substance: LENALIDOMIDE
     Indication: Plasma cell myeloma
     Dosage: FREQ: DAILY DAYS 1-14 EVERY 21 DAYS
     Route: 048
     Dates: start: 20220520
  2. REVLIMID [Suspect]
     Active Substance: LENALIDOMIDE
     Dosage: FOR 14 DAYS ON, THEN 7 DAYS OFF
     Route: 048
     Dates: start: 20220914, end: 20221006

REACTIONS (10)
  - Fatigue [Not Recovered/Not Resolved]
  - Dyspnoea [Not Recovered/Not Resolved]
  - Platelet count decreased [Not Recovered/Not Resolved]
  - Bone pain [Unknown]
  - Back pain [Unknown]
  - Feeling abnormal [Unknown]
  - Hypoaesthesia [Not Recovered/Not Resolved]
  - Central nervous system lesion [Not Recovered/Not Resolved]
  - Muscle spasms [Not Recovered/Not Resolved]
  - Intentional product use issue [Unknown]
